FAERS Safety Report 25778700 (Version 1)
Quarter: 2025Q3

REPORT INFORMATION
  Report Type: Spontaneous
  Country: EU (occurrence: EU)
  Receive Date: 20250909
  Receipt Date: 20250909
  Transmission Date: 20251021
  Serious: Yes (Hospitalization)
  Sender: TEVA
  Company Number: EU-ACTAVIS-2014-13559

PATIENT
  Age: 66 Year
  Sex: Female
  Weight: 75.2 kg

DRUGS (12)
  1. EPIRUBICIN [Suspect]
     Active Substance: EPIRUBICIN
     Indication: HER2 positive breast cancer
     Dosage: DATE OF LAST DOSE PRIOR TO ONSET OF AE:16/JUL/2012; DATE OF LAST DOSE PRIOR TO AE FEBRILIA NEUTRO...
     Route: 042
     Dates: start: 20120606
  2. EPIRUBICIN [Suspect]
     Active Substance: EPIRUBICIN
     Indication: HER2 positive breast cancer
     Route: 042
  3. CYCLOPHOSPHAMIDE [Suspect]
     Active Substance: CYCLOPHOSPHAMIDE
     Indication: HER2 positive breast cancer
     Dosage: DATE OF LAST DOSE PRIOR TO ONSET OF AE:16/JUL/2012; DATE OF LAST DOSE PRIOR TO AE FEBRILIA NEUTRO...
     Route: 042
     Dates: start: 20120606, end: 20120808
  4. CYCLOPHOSPHAMIDE [Suspect]
     Active Substance: CYCLOPHOSPHAMIDE
     Indication: HER2 positive breast cancer
     Route: 042
  5. FLUOROURACIL [Suspect]
     Active Substance: FLUOROURACIL
     Indication: HER2 positive breast cancer
     Dosage: DATE OF LAST DOSE PRIOR TO ONSET OF AE:16/JUL/2012; DATE OF LAST DOSE PRIOR TO AE FEBRILIA NEUTRO...
     Route: 042
     Dates: start: 20120606
  6. FLUOROURACIL [Suspect]
     Active Substance: FLUOROURACIL
     Indication: HER2 positive breast cancer
     Route: 042
  7. LANSOPRAZOLE [Concomitant]
     Active Substance: LANSOPRAZOLE
     Indication: Product used for unknown indication
     Route: 065
     Dates: start: 20120813
  8. PLACEBO [Suspect]
     Active Substance: PLACEBO
     Indication: HER2 positive breast cancer
     Dosage: MAINTANANCE DOSE
     Route: 042
  9. PLACEBO [Suspect]
     Active Substance: PLACEBO
     Indication: HER2 positive breast cancer
     Dosage: MOST RECENT DOSE 13/AUG/2012, 24/SEP/2012; LOADING DOSE, CYCLE 1
     Route: 042
     Dates: start: 20120813
  10. DOCETAXEL [Suspect]
     Active Substance: DOCETAXEL
     Indication: HER2 positive breast cancer
     Dosage: MOST RECENT DOSE 13/AUG/2012, 24/SEP/2012
     Route: 042
     Dates: start: 20120813
  11. TRASTUZUMAB [Suspect]
     Active Substance: TRASTUZUMAB
     Indication: HER2 positive breast cancer
     Dosage: MOST RECENT DOSE 13/AUG/2012, 24/SEP/2012; LOADING DOSE
     Route: 042
     Dates: start: 20120813
  12. TRASTUZUMAB [Suspect]
     Active Substance: TRASTUZUMAB
     Indication: HER2 positive breast cancer
     Dosage: MAINTANANCE DOSE
     Route: 042

REACTIONS (4)
  - Skin infection [Recovered/Resolved with Sequelae]
  - Febrile neutropenia [Recovered/Resolved]
  - Sepsis [Recovered/Resolved]
  - Sepsis [Recovered/Resolved]

NARRATIVE: CASE EVENT DATE: 20120619
